FAERS Safety Report 7070269-6 (Version None)
Quarter: 2010Q4

REPORT INFORMATION
  Report Type: 
  Country: None (occurrence: None)
  Receive Date: 20101028
  Receipt Date: 20101012
  Transmission Date: 20110411
  Serious: No
  Sender: FDA-Public Use
  Company Number: US-WYE-H18159610

PATIENT
  Age: 89 Year
  Sex: Male

DRUGS (1)
  1. CORDARONE [Suspect]

REACTIONS (1)
  - UNEVALUABLE EVENT [None]
